FAERS Safety Report 24572225 (Version 5)
Quarter: 2025Q3

REPORT INFORMATION
  Report Type: Report from Study
  Country: JP (occurrence: JP)
  Receive Date: 20241101
  Receipt Date: 20250806
  Transmission Date: 20251020
  Serious: Yes (Other)
  Sender: AKEBIA THERAPEUTICS
  Company Number: JP-MTPC-MTPC2023-0028722

PATIENT
  Age: 75 Year
  Sex: Male

DRUGS (1)
  1. VADADUSTAT [Suspect]
     Active Substance: VADADUSTAT
     Indication: Nephrogenic anaemia
     Dosage: 300 MILLIGRAM, QD
     Route: 048
     Dates: start: 20220408, end: 20220415

REACTIONS (1)
  - Oesophageal carcinoma recurrent [Not Recovered/Not Resolved]

NARRATIVE: CASE EVENT DATE: 20220415
